FAERS Safety Report 10228108 (Version 3)
Quarter: 2015Q2

REPORT INFORMATION
  Report Type: Other
  Country: CO (occurrence: CO)
  Receive Date: 20140610
  Receipt Date: 20150421
  Transmission Date: 20150821
  Serious: Yes (Death, Hospitalization, Other)
  Sender: FDA-Public Use
  Company Number: CO-SHIRE-CO201402717

PATIENT
  Age: 18 Year
  Sex: Male
  Weight: 33 kg

DRUGS (1)
  1. ELAPRASE [Suspect]
     Active Substance: IDURSULFASE
     Indication: MUCOPOLYSACCHARIDOSIS II
     Dosage: 18 MG (3 VIALS), OTHER (EVERY 8 DAYS)
     Route: 041
     Dates: start: 20090101

REACTIONS (2)
  - Cardio-respiratory arrest [Fatal]
  - Respiratory distress [Unknown]

NARRATIVE: CASE EVENT DATE: 20140602
